FAERS Safety Report 9628737 (Version 1)
Quarter: 2013Q4

REPORT INFORMATION
  Report Type: Report from Study
  Country: CA (occurrence: CA)
  Receive Date: 20131017
  Receipt Date: 20131017
  Transmission Date: 20140711
  Serious: Yes (Other)
  Sender: FDA-Public Use
  Company Number: CA-JNJFOC-20131006996

PATIENT
  Age: 14 Year
  Sex: Male
  Weight: 48.2 kg

DRUGS (1)
  1. REMICADE [Suspect]
     Indication: CROHN^S DISEASE
     Dosage: ALSO REPORTED AS 200 MG ONCE EVERY 8 WEEKS
     Route: 042
     Dates: start: 20111006, end: 20130826

REACTIONS (2)
  - Neoplasm malignant [Unknown]
  - Lymphoma [Unknown]
